FAERS Safety Report 10400952 (Version 3)
Quarter: 2014Q3

REPORT INFORMATION
  Report Type: Spontaneous
  Country: US (occurrence: US)
  Receive Date: 20140821
  Receipt Date: 20140827
  Transmission Date: 20150326
  Serious: Yes (Hospitalization, Disabling, Other)
  Sender: FDA-Public Use
  Company Number: US-009507513-1012USA01896

PATIENT
  Sex: Female
  Weight: 68.39 kg

DRUGS (8)
  1. FOSAMAX PLUS D [Suspect]
     Active Substance: ALENDRONATE SODIUM\CHOLECALCIFEROL
     Indication: OSTEOPENIA
  2. FOSAMAX PLUS D [Suspect]
     Active Substance: ALENDRONATE SODIUM\CHOLECALCIFEROL
     Indication: OSTEOPOROSIS PROPHYLAXIS
     Dosage: 70/5600
     Route: 048
     Dates: start: 20060207, end: 20081215
  3. FOSAMAX [Suspect]
     Active Substance: ALENDRONATE SODIUM
     Indication: OSTEOPENIA
     Dosage: 10 MG, QD
     Route: 048
     Dates: start: 19990510, end: 200012
  4. FOSAMAX [Suspect]
     Active Substance: ALENDRONATE SODIUM
     Dosage: 70 MG, QW
     Route: 048
     Dates: start: 20010323, end: 200601
  5. VITAMIN E [Concomitant]
     Active Substance: .ALPHA.-TOCOPHEROL
  6. FOSAMAX [Suspect]
     Active Substance: ALENDRONATE SODIUM
     Indication: OSTEOPOROSIS PROPHYLAXIS
     Dosage: 70 MG, UNK
     Route: 048
     Dates: end: 20081215
  7. VITAMIN D [Concomitant]
     Active Substance: CHOLECALCIFEROL
  8. MK-9278 [Concomitant]
     Active Substance: VITAMINS

REACTIONS (54)
  - Osteoporosis [Unknown]
  - Influenza [Recovered/Resolved]
  - Goitre [Unknown]
  - Hip fracture [Unknown]
  - Urinary incontinence [Unknown]
  - Breast calcifications [Unknown]
  - Dyspnoea [Unknown]
  - High density lipoprotein increased [Unknown]
  - Pain in extremity [Unknown]
  - Breast disorder [Unknown]
  - Polyarthritis [Unknown]
  - Hypercalciuria [Unknown]
  - Pollakiuria [Unknown]
  - Tibia fracture [Unknown]
  - Appendicectomy [Unknown]
  - Pseudopolyp [Unknown]
  - Back disorder [Unknown]
  - Thyroid function test abnormal [Unknown]
  - Implant site extravasation [Unknown]
  - Implant site pain [Unknown]
  - Chest discomfort [Unknown]
  - Dry eye [Unknown]
  - Dizziness [Unknown]
  - Peripheral vascular disorder [Unknown]
  - Calyceal diverticulum [Unknown]
  - Skin hypertrophy [Unknown]
  - Blood cholesterol increased [Unknown]
  - Cystitis [Unknown]
  - Chest discomfort [Unknown]
  - Low turnover osteopathy [Unknown]
  - Pain in extremity [Unknown]
  - Chest pain [Unknown]
  - Electrocardiogram ST-T segment abnormal [Unknown]
  - Low density lipoprotein increased [Unknown]
  - Vein disorder [Unknown]
  - Peripheral vascular disorder [Unknown]
  - Femur fracture [Recovered/Resolved]
  - Rotator cuff syndrome [Not Recovered/Not Resolved]
  - Vulvovaginal pain [Unknown]
  - Breast fibrosis [Unknown]
  - Renal pain [Unknown]
  - Nephrolithiasis [Unknown]
  - Epicondylitis [Not Recovered/Not Resolved]
  - Abdominal discomfort [Unknown]
  - Back pain [Recovered/Resolved]
  - Musculoskeletal stiffness [Recovered/Resolved]
  - Stress fracture [Unknown]
  - Angiopathy [Unknown]
  - Vascular insufficiency [Unknown]
  - Impaired healing [Unknown]
  - Cystocele [Unknown]
  - Nocturia [Unknown]
  - Oedema peripheral [Unknown]
  - Cataract [Unknown]

NARRATIVE: CASE EVENT DATE: 2000
